FAERS Safety Report 6729783-2 (Version None)
Quarter: 2010Q2

REPORT INFORMATION
  Report Type: 
  Country: None (occurrence: None)
  Receive Date: 20100513
  Receipt Date: 20070831
  Transmission Date: 20101027
  Serious: Yes (Death, Hospitalization)
  Sender: FDA-Public Use
  Company Number: DSA_43090_2010

PATIENT
  Age: 32 Year
  Sex: Male

DRUGS (3)
  1. ENALAPRIL MALEATE [Suspect]
     Indication: HYPERTENSION
     Dosage: (DF ORAL)
     Route: 048
  2. AMLODIPINE BESYLATE [Concomitant]
  3. METHYLPREDNISOLONE [Concomitant]

REACTIONS (32)
  - ACUTE DISSEMINATED ENCEPHALOMYELITIS [None]
  - ALBUMIN URINE PRESENT [None]
  - ALTERED STATE OF CONSCIOUSNESS [None]
  - BLOOD ALBUMIN DECREASED [None]
  - BLOOD CREATININE INCREASED [None]
  - BLOOD LACTATE DEHYDROGENASE INCREASED [None]
  - BLOOD UREA INCREASED [None]
  - BRAIN HERNIATION [None]
  - BRAIN OEDEMA [None]
  - BRAIN STEM SYNDROME [None]
  - BRONCHOPNEUMONIA [None]
  - CEREBRAL INFARCTION [None]
  - CONFUSIONAL STATE [None]
  - CSF PROTEIN INCREASED [None]
  - ELECTROENCEPHALOGRAM ABNORMAL [None]
  - EXTENSOR PLANTAR RESPONSE [None]
  - GENERAL PHYSICAL HEALTH DETERIORATION [None]
  - GRIMACING [None]
  - HYPERHIDROSIS [None]
  - HYPERREFLEXIA [None]
  - HYPERTENSION [None]
  - LEFT VENTRICULAR HYPERTROPHY [None]
  - LEUKOCYTOSIS [None]
  - MUSCLE SPASMS [None]
  - MUSCLE SPASTICITY [None]
  - MUSCLE TWITCHING [None]
  - SINUS TACHYCARDIA [None]
  - SWELLING [None]
  - TACHYPNOEA [None]
  - TRISMUS [None]
  - URINARY INCONTINENCE [None]
  - VASCULITIS CEREBRAL [None]
